FAERS Safety Report 6736971-8 (Version None)
Quarter: 2010Q2

REPORT INFORMATION
  Report Type: 
  Country: None (occurrence: None)
  Receive Date: 20100523
  Receipt Date: 20100318
  Transmission Date: 20101027
  Serious: No
  Sender: FDA-Public Use
  Company Number: US-ALLERGAN-1003631US

PATIENT
  Age: 55 Year
  Sex: Male

DRUGS (1)
  1. COMBIGAN [Suspect]
     Indication: GLAUCOMA
     Dosage: 1 GTT, BID
     Route: 047
     Dates: start: 20091113, end: 20100205

REACTIONS (10)
  - BLEPHARITIS [None]
  - CONJUNCTIVAL FOLLICLES [None]
  - CONJUNCTIVITIS ALLERGIC [None]
  - ERYTHEMA OF EYELID [None]
  - EYE DISCHARGE [None]
  - EYE IRRITATION [None]
  - EYE PAIN [None]
  - EYE PRURITUS [None]
  - EYELIDS PRURITUS [None]
  - HYPERAEMIA [None]
